FAERS Safety Report 15920142 (Version 2)
Quarter: 2020Q2

REPORT INFORMATION
  Report Type: Spontaneous
  Country: US (occurrence: US)
  Receive Date: 20190205
  Receipt Date: 20200505
  Transmission Date: 20200713
  Serious: Yes (Other)
  Sender: FDA-Public Use
  Company Number: US-BRISTOL-MYERS SQUIBB COMPANY-BMS-2019-010411

PATIENT
  Sex: Male

DRUGS (1)
  1. ELIQUIS [Suspect]
     Active Substance: APIXABAN
     Indication: CARDIAC ABLATION
     Dosage: UNK
     Route: 065
     Dates: end: 201901

REACTIONS (4)
  - Intentional product use issue [Unknown]
  - Syncope [Unknown]
  - Dehydration [Unknown]
  - Implant site thrombosis [Unknown]

NARRATIVE: CASE EVENT DATE: 201901
